FAERS Safety Report 17097428 (Version 1)
Quarter: 2019Q4

REPORT INFORMATION
  Report Type: Spontaneous
  Country: US (occurrence: US)
  Receive Date: 20191105
  Receipt Date: 20191105
  Transmission Date: 20200122
  Serious: Yes (Hospitalization)
  Sender: FDA-Public Use
  Company Number: None

PATIENT
  Age: 62 Year
  Sex: Male

DRUGS (1)
  1. PHENYTOIN ER [Suspect]
     Active Substance: PHENYTOIN SODIUM
     Indication: SEIZURE
     Route: 048

REACTIONS (3)
  - Anticonvulsant drug level increased [None]
  - Product administration error [None]
  - Product dispensing error [None]

NARRATIVE: CASE EVENT DATE: 20191015
